FAERS Safety Report 19579846 (Version 2)
Quarter: 2021Q3

REPORT INFORMATION
  Report Type: Report from Study
  Country: US (occurrence: US)
  Receive Date: 20210720
  Receipt Date: 20210826
  Transmission Date: 20211014
  Serious: Yes (Hospitalization, Other)
  Sender: FDA-Public Use
  Company Number: US-SA-2021SA021852

PATIENT
  Age: 71 Year
  Sex: Female

DRUGS (1)
  1. LIXISENATIDE [Suspect]
     Active Substance: LIXISENATIDE
     Indication: TYPE 2 DIABETES MELLITUS
     Dosage: 20 UG, QD
     Route: 058

REACTIONS (7)
  - Pulmonary oedema [Unknown]
  - Arteriosclerosis coronary artery [Unknown]
  - Cardiac failure congestive [Unknown]
  - Intervertebral disc degeneration [Unknown]
  - Cough [Unknown]
  - Chronic kidney disease-mineral and bone disorder [Unknown]
  - Intervertebral disc protrusion [Unknown]
